FAERS Safety Report 17519905 (Version 4)
Quarter: 2020Q3

REPORT INFORMATION
  Report Type: Report from Study
  Country: JP (occurrence: JP)
  Receive Date: 20200310
  Receipt Date: 20200812
  Transmission Date: 20201102
  Serious: Yes (Hospitalization)
  Sender: FDA-Public Use
  Company Number: NVSJ2020JP002771

PATIENT
  Age: 26 Year
  Sex: Female
  Weight: 59.6 kg

DRUGS (21)
  1. ILARIS [Suspect]
     Active Substance: CANAKINUMAB
     Dosage: 240 MG
     Route: 058
     Dates: start: 20181113
  2. ILARIS [Suspect]
     Active Substance: CANAKINUMAB
     Dosage: 240 MG
     Route: 058
     Dates: start: 20190108
  3. ILARIS [Suspect]
     Active Substance: CANAKINUMAB
     Dosage: 232.5 MG
     Route: 058
     Dates: start: 20190304
  4. PREDNISOLONE. [Concomitant]
     Active Substance: PREDNISOLONE
     Indication: STILL^S DISEASE
     Dosage: 20 MG, UNK
     Route: 048
     Dates: start: 202002
  5. BACTRAMIN [Concomitant]
     Active Substance: SULFAMETHOXAZOLE\TRIMETHOPRIM
     Indication: PRODUCT USED FOR UNKNOWN INDICATION
     Dosage: 1 DF, UNK
     Route: 048
     Dates: start: 20171124
  6. FAMOTIDINE. [Concomitant]
     Active Substance: FAMOTIDINE
     Indication: PRODUCT USED FOR UNKNOWN INDICATION
     Dosage: 20 MG, UNK
     Route: 048
     Dates: start: 20140529
  7. ILARIS [Suspect]
     Active Substance: CANAKINUMAB
     Dosage: 240 MG
     Route: 058
     Dates: start: 20181009
  8. AZULFIDINE [Concomitant]
     Active Substance: SULFASALAZINE
     Indication: STILL^S DISEASE
     Dosage: 1000 MG, UNK
     Route: 048
     Dates: start: 20181113, end: 20190116
  9. ILARIS [Suspect]
     Active Substance: CANAKINUMAB
     Dosage: 240 MG
     Route: 058
     Dates: start: 20190204
  10. PROGRAF [Concomitant]
     Active Substance: TACROLIMUS
     Indication: STILL^S DISEASE
     Dosage: 4 MG, UNK
     Route: 065
     Dates: start: 20160215
  11. PRALIA [Concomitant]
     Active Substance: DENOSUMAB
     Indication: PRODUCT USED FOR UNKNOWN INDICATION
     Dosage: 60 MG, UNK
     Route: 058
     Dates: start: 20180214
  12. ILARIS [Suspect]
     Active Substance: CANAKINUMAB
     Dosage: 240 MG
     Route: 058
     Dates: start: 20190520
  13. ILARIS [Suspect]
     Active Substance: CANAKINUMAB
     Indication: STILL^S DISEASE
     Dosage: 240 MG, UNK
     Route: 058
     Dates: start: 20180816
  14. ILARIS [Suspect]
     Active Substance: CANAKINUMAB
     Dosage: 240 MG
     Route: 058
     Dates: start: 20180911
  15. ILARIS [Suspect]
     Active Substance: CANAKINUMAB
     Dosage: 240 MG
     Route: 058
     Dates: start: 20181211
  16. ILARIS [Suspect]
     Active Substance: CANAKINUMAB
     Dosage: UNK
     Route: 065
  17. LOXONIN [Concomitant]
     Active Substance: LOXOPROFEN SODIUM
     Indication: STILL^S DISEASE
     Dosage: 100 MG, UNK
     Route: 003
     Dates: start: 20180119
  18. RELENZA [Concomitant]
     Active Substance: ZANAMIVIR
     Indication: PROPHYLAXIS
     Dosage: 10 MG, UNK
     Route: 065
     Dates: start: 20190225, end: 20190315
  19. ILARIS [Suspect]
     Active Substance: CANAKINUMAB
     Dosage: 240 MG
     Route: 058
     Dates: start: 20190401
  20. ILARIS [Suspect]
     Active Substance: CANAKINUMAB
     Dosage: 240 MG
     Route: 058
     Dates: start: 20190423
  21. ILARIS [Suspect]
     Active Substance: CANAKINUMAB
     Dosage: 255 MG
     Route: 058
     Dates: start: 20190724

REACTIONS (7)
  - Anogenital warts [Recovering/Resolving]
  - Iron deficiency anaemia [Recovering/Resolving]
  - Bronchitis [Recovered/Resolved]
  - Maternal exposure during pregnancy [Unknown]
  - Bronchitis [Recovering/Resolving]
  - Gastroenteritis [Recovered/Resolved]
  - Infection [Unknown]

NARRATIVE: CASE EVENT DATE: 20181113
